FAERS Safety Report 7557950-7 (Version None)
Quarter: 2011Q2

REPORT INFORMATION
  Report Type: 
  Country: None (occurrence: None)
  Receive Date: 20110620
  Receipt Date: 20110613
  Transmission Date: 20111010
  Serious: Yes (Other)
  Sender: FDA-Public Use
  Company Number: B0727180A

PATIENT
  Age: 12 Year
  Sex: Male

DRUGS (1)
  1. CEFUROXIME SODIUM [Suspect]
     Indication: TONSILLITIS
     Dates: start: 20110602, end: 20110606

REACTIONS (4)
  - DIARRHOEA HAEMORRHAGIC [None]
  - ABDOMINAL PAIN [None]
  - HEADACHE [None]
  - DIARRHOEA [None]
